FAERS Safety Report 9055609 (Version 6)
Quarter: 2013Q3

REPORT INFORMATION
  Report Type: Spontaneous
  Country: US (occurrence: US)
  Receive Date: 20130206
  Receipt Date: 20130819
  Transmission Date: 20140515
  Serious: No
  Sender: FDA-Public Use
  Company Number: US-009507513-1302USA002290

PATIENT
  Age: 55 Year
  Sex: Female
  Weight: 74.83 kg

DRUGS (4)
  1. ZEGERID OTC CAPSULES [Suspect]
     Indication: DYSPEPSIA
     Dosage: 20 MG, QD
     Route: 048
     Dates: start: 2010
  2. ZEGERID OTC CAPSULES [Suspect]
     Indication: MEDICAL OBSERVATION
     Dosage: UNK, UNKNOWN
     Route: 048
  3. LEVETIRACETAM [Concomitant]
     Indication: THYROID DISORDER
     Dosage: UNK, UNKNOWN
  4. AMITRIPTYLINE HYDROCHLORIDE [Concomitant]
     Indication: POOR QUALITY SLEEP
     Dosage: UNK, UNKNOWN

REACTIONS (6)
  - Gastric disorder [Not Recovered/Not Resolved]
  - Vomiting [Recovered/Resolved]
  - Abdominal discomfort [Unknown]
  - Malaise [Unknown]
  - Incorrect drug administration duration [Unknown]
  - Product label on wrong product [Unknown]
